FAERS Safety Report 6221633-6 (Version None)
Quarter: 2009Q2

REPORT INFORMATION
  Report Type: 
  Country: None (occurrence: None)
  Receive Date: 20090610
  Receipt Date: 20090604
  Transmission Date: 20091009
  Serious: No
  Sender: FDA-Public Use
  Company Number: GB-EISAI INC.-E2090-00657-SPO-GB

PATIENT
  Age: 41 Year
  Sex: Male

DRUGS (4)
  1. ZONEGRAN [Suspect]
     Indication: EPILEPSY
     Dosage: INITIATED 25 AND BUILT UP TO OVER 600 MG
     Route: 048
  2. ZONEGRAN [Suspect]
     Route: 048
  3. ZONEGRAN [Suspect]
     Dosage: DOSAGE UNKNOWN BEING REDUCED
     Route: 048
     Dates: start: 20090101
  4. GABAPENTIN [Interacting]
     Indication: DRUG USE FOR UNKNOWN INDICATION
     Route: 048

REACTIONS (2)
  - DRUG INTERACTION [None]
  - MUTISM [None]
